FAERS Safety Report 5450137-3 (Version None)
Quarter: 2007Q3

REPORT INFORMATION
  Report Type: 
  Country: None (occurrence: None)
  Receive Date: 20070912
  Receipt Date: 20070910
  Transmission Date: 20080115
  Serious: Yes (Other)
  Sender: FDA-Public Use
  Company Number: B0476681A

PATIENT
  Age: 47 Year
  Sex: Male

DRUGS (7)
  1. PAXIL [Suspect]
     Indication: DEPRESSION
     Dosage: 10MG THREE TIMES PER DAY
     Route: 048
     Dates: start: 20050119
  2. LORCAM [Suspect]
     Indication: HERNIA
     Dosage: 4MG THREE TIMES PER DAY
     Route: 048
     Dates: start: 20070510, end: 20070621
  3. METHYCOBAL [Concomitant]
     Indication: HERNIA
     Dosage: 1500MCG PER DAY
     Route: 048
     Dates: start: 20070510
  4. SILECE [Concomitant]
     Indication: INSOMNIA
     Route: 048
     Dates: start: 20050301
  5. CYTOTEC [Concomitant]
     Indication: HERNIA
     Dosage: 600MCG PER DAY
     Route: 048
     Dates: start: 20070510
  6. NEUROTROPIN [Concomitant]
     Indication: HERNIA
     Route: 048
     Dates: start: 20070510
  7. VOLTAREN [Concomitant]
     Route: 048
     Dates: start: 20070621

REACTIONS (1)
  - HAEMORRHAGE SUBCUTANEOUS [None]
